FAERS Safety Report 22313552 (Version 1)
Quarter: 2023Q2

REPORT INFORMATION
  Report Type: Spontaneous
  Country: US (occurrence: None)
  Receive Date: 20230510
  Receipt Date: 20230510
  Transmission Date: 20230722
  Serious: Yes (Other)
  Sender: FDA-Public Use
  Company Number: None

PATIENT
  Age: 65 Year
  Sex: Male

DRUGS (3)
  1. JAYPIRCA [Suspect]
     Active Substance: PIRTOBRUTINIB
  2. JAYPIRCA [Concomitant]
     Active Substance: PIRTOBRUTINIB
  3. CALQUENCE [Concomitant]
     Active Substance: ACALABRUTINIB

REACTIONS (1)
  - Urinary tract infection [None]

NARRATIVE: CASE EVENT DATE: 20230509
